FAERS Safety Report 26088569 (Version 1)
Quarter: 2025Q4

REPORT INFORMATION
  Report Type: Spontaneous
  Country: EU (occurrence: EU)
  Receive Date: 20251125
  Receipt Date: 20251125
  Transmission Date: 20260118
  Serious: Yes (Other)
  Sender: MYLAN
  Company Number: EU-PFIZER INC-PV202500129682

PATIENT
  Age: 29 Year
  Sex: Male

DRUGS (3)
  1. PACLITAXEL [Suspect]
     Active Substance: PACLITAXEL
     Indication: Testicular embryonal carcinoma
     Dosage: UNK UNK, CYCLE (X3)
     Dates: start: 2014
  2. CISPLATIN [Suspect]
     Active Substance: CISPLATIN
     Indication: Testicular embryonal carcinoma
     Dosage: UNK UNK, CYCLE (X3)
     Dates: start: 2014
  3. IFOSFAMIDE [Suspect]
     Active Substance: IFOSFAMIDE
     Indication: Testicular embryonal carcinoma
     Dosage: UNK UNK, CYCLE (X3)
     Dates: start: 2014

REACTIONS (3)
  - Neuropathy peripheral [Unknown]
  - Neutropenia [Unknown]
  - Off label use [Unknown]

NARRATIVE: CASE EVENT DATE: 20140101
